FAERS Safety Report 6297778-1 (Version None)
Quarter: 2009Q3

REPORT INFORMATION
  Report Type: 
  Country: None (occurrence: None)
  Receive Date: 20090804
  Receipt Date: 20090804
  Transmission Date: 20100115
  Serious: Yes (Other)
  Sender: FDA-Public Use
  Company Number: None

PATIENT
  Age: 84 Year
  Sex: Female

DRUGS (1)
  1. TRANXENE [Suspect]
     Dates: start: 20090525, end: 20090602

REACTIONS (2)
  - MOOD SWINGS [None]
  - TRICHOTILLOMANIA [None]
